FAERS Safety Report 8555259-6 (Version None)
Quarter: 2012Q3

REPORT INFORMATION
  Report Type: 
  Country: None (occurrence: None)
  Receive Date: 20120731
  Receipt Date: 20120518
  Transmission Date: 20120928
  Serious: No
  Sender: FDA-Public Use
  Company Number: US-ASTRAZENECA-2011SE62596

PATIENT
  Age: 52 Year
  Sex: Female

DRUGS (3)
  1. CYMBALTA [Concomitant]
  2. SEROQUEL [Suspect]
     Indication: BIPOLAR DISORDER
     Route: 048
  3. GABAPENTIN [Concomitant]

REACTIONS (7)
  - MELANOSIS [None]
  - MUSCLE DISORDER [None]
  - FIBROMYALGIA [None]
  - ADVERSE EVENT [None]
  - DRUG DOSE OMISSION [None]
  - BIPOLAR DISORDER [None]
  - ARTHRALGIA [None]
